FAERS Safety Report 12930384 (Version 1)
Quarter: 2016Q4

REPORT INFORMATION
  Report Type: Report from Study
  Country: None (occurrence: BE)
  Receive Date: 20161110
  Receipt Date: 20161110
  Transmission Date: 20170207
  Serious: Yes (Hospitalization)
  Sender: FDA-Public Use
  Company Number: BE-ABBVIE-16P-013-1772713-00

PATIENT
  Sex: Female

DRUGS (6)
  1. PICOSULFAAT (LAXOBERON) [Concomitant]
     Indication: PRODUCT USED FOR UNKNOWN INDICATION
  2. DUODOPA [Suspect]
     Active Substance: CARBIDOPA\LEVODOPA
     Dosage: AM= 4.5 ML; CD= 1.8 ML/H DURING 16 HRS; ED= 1.8 ML
     Route: 050
     Dates: start: 20160714
  3. DUODOPA [Suspect]
     Active Substance: CARBIDOPA\LEVODOPA
     Dosage: DOSES CONTINOUSLY MONITORED AND ADAPTED
     Route: 050
     Dates: start: 20150814, end: 20160717
  4. LEVODOPA/CARBIDOPA/ENTACAPON (STALEVO) [Concomitant]
     Indication: PRODUCT USED FOR UNKNOWN INDICATION
     Dosage: FORM STRENGTH: 50MG/12.5MG/200MG
  5. LEVODOPA/CARBIDOPA/ENTACAPON (STALEVO) [Concomitant]
     Dosage: FORM STRENGTH: 50MG/12.5MG/200MG, 6/DAY AS RESCUE MEDICATION
  6. DUODOPA [Suspect]
     Active Substance: CARBIDOPA\LEVODOPA
     Indication: PARKINSON^S DISEASE
     Dosage: AM= 5 ML; CD= 1.4 ML/H DURING 16 HRS; ED= 1.5 ML
     Route: 050
     Dates: start: 20150810, end: 20150814

REACTIONS (3)
  - Pyrexia [Recovered/Resolved]
  - Hospitalisation [Unknown]
  - Malaise [Recovered/Resolved]
